FAERS Safety Report 8297833-0 (Version None)
Quarter: 2012Q2

REPORT INFORMATION
  Report Type: 
  Country: None (occurrence: None)
  Receive Date: 20120419
  Receipt Date: 20120411
  Transmission Date: 20120825
  Serious: Yes (Hospitalization, Other)
  Sender: FDA-Public Use
  Company Number: US-AMGEN-USASP2012023167

PATIENT
  Sex: Female

DRUGS (3)
  1. NPLATE [Suspect]
     Indication: IDIOPATHIC THROMBOCYTOPENIC PURPURA
     Dosage: 500 MUG, QWK
     Dates: start: 20111201
  2. TEGRETOL [Concomitant]
  3. CELLCEPT [Concomitant]

REACTIONS (5)
  - INJURY [None]
  - FALL [None]
  - HEPATIC ENZYME INCREASED [None]
  - ASCITES [None]
  - GRAND MAL CONVULSION [None]
